FAERS Safety Report 8866101 (Version 1)
Quarter: 2012Q4

REPORT INFORMATION
  Report Type: 
  Country: US (occurrence: US)
  Receive Date: 20121025
  Receipt Date: 20121025
  Transmission Date: 20130627
  Serious: Yes (Hospitalization, Other)
  Sender: FDA-Public Use
  Company Number: US-ROCHE-1148180

PATIENT
  Age: 65 Year
  Sex: Female
  Weight: 129.84 kg

DRUGS (4)
  1. XARELTO [Suspect]
     Indication: KNEE ARTHROPLASTY
     Route: 048
     Dates: start: 20120803
  2. XARELTO [Suspect]
     Indication: THROMBOSIS
  3. TORADOL [Suspect]
     Indication: PAIN
     Route: 065
     Dates: end: 201208
  4. CELEBREX [Suspect]
     Indication: PREOPERATIVE CARE
     Route: 065

REACTIONS (2)
  - Deep vein thrombosis [Recovered/Resolved]
  - Drug ineffective [Unknown]
